FAERS Safety Report 5325051-4 (Version None)
Quarter: 2007Q2

REPORT INFORMATION
  Report Type: 
  Country: None (occurrence: None)
  Receive Date: 20070510
  Receipt Date: 20070510
  Transmission Date: 20071010
  Serious: Yes (Other)
  Sender: FDA-Public Use
  Company Number: None

PATIENT
  Age: 75 Year
  Sex: Female
  Weight: 95.2554 kg

DRUGS (1)
  1. LOVASTATIN [Suspect]
     Dosage: 1 TABLET  DAILEY

REACTIONS (1)
  - SWELLING [None]
